FAERS Safety Report 4474278-2 (Version None)
Quarter: 2004Q4

REPORT INFORMATION
  Report Type: 
  Country: None (occurrence: None)
  Receive Date: 20041008
  Receipt Date: 20040917
  Transmission Date: 20050328
  Serious: Yes (Hospitalization, Other)
  Sender: FDA-Public Use
  Company Number: USA040978585

PATIENT
  Age: 54 Year
  Sex: Male
  Weight: 67 kg

DRUGS (1)
  1. FORTEO [Suspect]
     Dosage: 20 UG DAY
     Dates: start: 20031101

REACTIONS (3)
  - MEDICAL DEVICE COMPLICATION [None]
  - NECROTISING FASCIITIS [None]
  - PHARMACEUTICAL PRODUCT COMPLAINT [None]
